FAERS Safety Report 10468515 (Version 1)
Quarter: 2014Q3

REPORT INFORMATION
  Report Type: Report from Study
  Country: BR (occurrence: BR)
  Receive Date: 20140922
  Receipt Date: 20140922
  Transmission Date: 20150326
  Serious: Yes (Other)
  Sender: FDA-Public Use
  Company Number: PHHY2014BR123154

PATIENT
  Age: 75 Year
  Sex: Female
  Weight: 70 kg

DRUGS (8)
  1. SINVALIP [Concomitant]
     Indication: BLOOD CHOLESTEROL INCREASED
     Dosage: 1 DF, QD (AT NIGHT)
  2. DIOVAN [Suspect]
     Active Substance: VALSARTAN
     Indication: HYPERTENSION
     Dosage: 1 DF, QD (IN THE MORNING)
  3. PURAN [Concomitant]
     Active Substance: LEVOTHYROXINE SODIUM
     Indication: THYROID DISORDER
     Dosage: 1 DF, QD (IN THE MORNING)
  4. EBIX [Suspect]
     Active Substance: MEMANTINE HYDROCHLORIDE
     Indication: DEMENTIA ALZHEIMER^S TYPE
     Dosage: 2 DF, DAILY
  5. STABIL//PRAMIPEXOLE DIHYDROCHLORIDE [Suspect]
     Active Substance: PRAMIPEXOLE DIHYDROCHLORIDE
     Indication: PARKINSON^S DISEASE
     Dosage: 1 DF, BID (IN THE MORNING AND AT NIGHT)
  6. EXELON PATCH [Suspect]
     Active Substance: RIVASTIGMINE
     Indication: DEMENTIA ALZHEIMER^S TYPE
     Dosage: 9.5 MG, QD (IN THE MORNING) (10 CM2)
     Route: 062
     Dates: start: 201405
  7. ZOLOFT [Suspect]
     Active Substance: SERTRALINE HYDROCHLORIDE
     Indication: PANIC DISORDER
     Dosage: 0.5 DF, QD (IN THE MORNING)
  8. PROLOPA [Suspect]
     Active Substance: BENSERAZIDE\LEVODOPA
     Indication: PARKINSON^S DISEASE
     Dosage: 1 DF, TID (IN THE MORNING, AFTERNOON AND AT NIGHT)

REACTIONS (9)
  - Dysstasia [Not Recovered/Not Resolved]
  - Slow speech [Unknown]
  - Movement disorder [Unknown]
  - Cerebrovascular accident [Unknown]
  - Speech disorder [Unknown]
  - Weight decreased [Unknown]
  - Gait disturbance [Unknown]
  - Balance disorder [Unknown]
  - Fall [Unknown]

NARRATIVE: CASE EVENT DATE: 201405
